FAERS Safety Report 4532180-1 (Version None)
Quarter: 2004Q4

REPORT INFORMATION
  Report Type: 
  Country: None (occurrence: None)
  Receive Date: 20041217
  Receipt Date: 20041207
  Transmission Date: 20050328
  Serious: Yes (Disabling)
  Sender: FDA-Public Use
  Company Number: 2004110216

PATIENT
  Age: 43 Year
  Sex: Female
  Weight: 48.9885 kg

DRUGS (3)
  1. DEPO-PROVERA [Suspect]
     Indication: PREMENSTRUAL SYNDROME
     Dosage: 150 MG (150 MG FIRST INJECTION, EVERY 10-13 WEEKS), INTRAMUSCULAR
     Route: 030
     Dates: start: 20000601, end: 20000601
  2. DEPO-PROVERA [Suspect]
     Indication: PREMENSTRUAL SYNDROME
     Dosage: 150 MG (150 MG FIRST INJECTION, EVERY 10-13 WEEKS), INTRAMUSCULAR
     Route: 030
     Dates: start: 20041029, end: 20041029
  3. SALBUTAMOL (SALBUTAMOL) [Concomitant]

REACTIONS (9)
  - ALOPECIA [None]
  - ARTHRALGIA [None]
  - ASTHENIA [None]
  - BACK PAIN [None]
  - DEPRESSION [None]
  - LOSS OF LIBIDO [None]
  - NECK PAIN [None]
  - PALPITATIONS [None]
  - SPINAL COLUMN STENOSIS [None]
